FAERS Safety Report 23998819 (Version 1)
Quarter: 2024Q2

REPORT INFORMATION
  Report Type: Spontaneous
  Country: CA (occurrence: CA)
  Receive Date: 20240621
  Receipt Date: 20240621
  Transmission Date: 20240715
  Serious: Yes (Other)
  Sender: FDA-Public Use
  Company Number: None

PATIENT
  Sex: Male

DRUGS (2)
  1. QUETIAPINE FUMARATE [Suspect]
     Active Substance: QUETIAPINE FUMARATE
     Indication: Insomnia
     Route: 048
  2. ARIPIPRAZOLE [Suspect]
     Active Substance: ARIPIPRAZOLE
     Indication: Insomnia
     Route: 048

REACTIONS (8)
  - Apathy [Recovering/Resolving]
  - Condition aggravated [Recovering/Resolving]
  - Depressed mood [Recovering/Resolving]
  - Libido decreased [Recovering/Resolving]
  - Nicotine dependence [Recovering/Resolving]
  - Off label use [Recovering/Resolving]
  - Sedation [Recovering/Resolving]
  - Substance use disorder [Recovering/Resolving]
